FAERS Safety Report 21732406 (Version 1)
Quarter: 2022Q4

REPORT INFORMATION
  Report Type: Spontaneous
  Country: RU (occurrence: RU)
  Receive Date: 20221215
  Receipt Date: 20221215
  Transmission Date: 20230112
  Serious: Yes (Life-Threatening)
  Sender: FDA-Public Use
  Company Number: RU-HETERO-HET2022RU03097

PATIENT
  Age: 9 Year
  Sex: Female
  Weight: 32 kg

DRUGS (1)
  1. LEVETIRACETAM [Suspect]
     Active Substance: LEVETIRACETAM
     Indication: Epilepsy
     Dosage: 250 MG,  EVERY 2 DAYS
     Route: 048

REACTIONS (1)
  - Petit mal epilepsy [Not Recovered/Not Resolved]
